FAERS Safety Report 25632177 (Version 1)
Quarter: 2025Q3

REPORT INFORMATION
  Report Type: Spontaneous
  Country: CH (occurrence: CH)
  Receive Date: 20250801
  Receipt Date: 20250801
  Transmission Date: 20251020
  Serious: Yes (Hospitalization, Other)
  Sender: ASTELLAS
  Company Number: None

PATIENT
  Age: 67 Year
  Sex: Male
  Weight: 95 kg

DRUGS (23)
  1. PROGRAF [Suspect]
     Active Substance: TACROLIMUS
     Indication: Prophylaxis against transplant rejection
     Dosage: DRUG INTERVAL DOSAGE UNIT NUMBER 12
     Route: 048
     Dates: start: 20250508, end: 20250511
  2. PROGRAF [Suspect]
     Active Substance: TACROLIMUS
     Dosage: DRUG INTERVAL DOSAGE UNIT NUMBER 12
     Route: 048
     Dates: start: 20250512, end: 20250513
  3. PROGRAF [Suspect]
     Active Substance: TACROLIMUS
     Dosage: DRUG INTERVAL DOSAGE UNIT NUMBER 12
     Route: 048
     Dates: start: 20250514, end: 20250516
  4. CELLCEPT [Suspect]
     Active Substance: MYCOPHENOLATE MOFETIL
     Indication: Product used for unknown indication
     Dosage: DRUG INTERVAL DOSAGE UNIT NUMBER 12
     Route: 048
     Dates: start: 20250513, end: 20250517
  5. GENTAMICIN [Suspect]
     Active Substance: GENTAMICIN
     Indication: Product used for unknown indication
     Route: 042
     Dates: start: 20250512, end: 20250518
  6. ZOVIRAX [Suspect]
     Active Substance: ACYCLOVIR
     Indication: Product used for unknown indication
     Route: 042
     Dates: start: 20250514, end: 20250520
  7. PREDNISONE [Concomitant]
     Active Substance: PREDNISONE
     Indication: Product used for unknown indication
     Route: 048
     Dates: start: 20250511
  8. METAMIZOLE [Concomitant]
     Active Substance: METAMIZOLE
     Indication: Product used for unknown indication
     Dosage: DRUG INTERVAL DOSAGE UNIT NUMBER 8
     Route: 048
     Dates: start: 20250507
  9. PANTOZOL [Concomitant]
     Active Substance: PANTOPRAZOLE SODIUM
     Indication: Product used for unknown indication
     Route: 048
     Dates: start: 20250507
  10. BARACLUDE [Concomitant]
     Active Substance: ENTECAVIR
     Indication: Product used for unknown indication
     Route: 048
  11. FOLIC ACID [Concomitant]
     Active Substance: FOLIC ACID
     Indication: Product used for unknown indication
     Route: 048
     Dates: start: 20250507
  12. BECOZYM [CALCIUM PANTOTHENATE;NICOTINAMIDE;PYRIDOXINE HYDROCHLORIDE;RI [Concomitant]
     Indication: Product used for unknown indication
     Route: 048
     Dates: start: 20250507
  13. THIAMINE HYDROCHLORIDE [Concomitant]
     Active Substance: THIAMINE HYDROCHLORIDE
     Indication: Product used for unknown indication
     Route: 048
     Dates: start: 20250507
  14. AMPHOTERICIN B [Concomitant]
     Active Substance: AMPHOTERICIN B
     Indication: Product used for unknown indication
     Dosage: DRUG INTERVAL DOSAGE UNIT NUMBER 6?SUSPENSION?10% 4X/DAY BUCCAL
     Route: 002
     Dates: start: 20250514
  15. MEROPENEM [Concomitant]
     Active Substance: MEROPENEM
     Route: 042
     Dates: start: 20250509
  16. KALIUMPHOSPHAT [Concomitant]
     Indication: Product used for unknown indication
     Dosage: DRUG INTERVAL DOSAGE UNIT NUMBER 1
     Route: 042
     Dates: start: 20250514
  17. MAGNESIUM SULFATE [Concomitant]
     Active Substance: MAGNESIUM SULFATE
     Indication: Product used for unknown indication
     Dosage: DRUG INTERVAL DOSAGE UNIT NUMBER 1
     Route: 042
     Dates: start: 20250514
  18. URSODIOL [Concomitant]
     Active Substance: URSODIOL
     Indication: Product used for unknown indication
     Route: 050
     Dates: start: 20250515
  19. DAPTOMYCIN [Concomitant]
     Active Substance: DAPTOMYCIN
     Indication: Product used for unknown indication
     Route: 065
     Dates: start: 20250509, end: 20250515
  20. BACTRIM [Concomitant]
     Active Substance: SULFAMETHOXAZOLE\TRIMETHOPRIM
     Indication: Product used for unknown indication
     Dosage: DRUG INTERVAL DOSAGE UNIT NUMBER 1?800 MG/ 160 MG 1X/DAY P.O.
     Route: 048
     Dates: start: 20250514, end: 20250520
  21. HEPARIN [Concomitant]
     Active Substance: HEPARIN SODIUM
     Indication: Product used for unknown indication
     Dosage: DRUG INTERVAL DOSAGE UNIT NUMBER 1?5000 IU/DAY I.V.
     Route: 042
     Dates: start: 20250509, end: 20250516
  22. CORDARONE [Concomitant]
     Active Substance: AMIODARONE HYDROCHLORIDE
     Indication: Product used for unknown indication
     Route: 042
     Dates: start: 20250510, end: 20250517
  23. SUPRADYN PRO ENERGY COMPLEX [Concomitant]
     Indication: Product used for unknown indication
     Dosage: DRUG INTERVAL DOSAGE UNIT NUMBER 1
     Route: 048
     Dates: start: 20250507

REACTIONS (8)
  - Bacteraemia [Unknown]
  - Septic shock [Unknown]
  - Leukoencephalopathy [Recovering/Resolving]
  - Acute kidney injury [Unknown]
  - Uraemic encephalopathy [Unknown]
  - Epstein-Barr virus infection reactivation [Unknown]
  - Herpes simplex reactivation [Unknown]
  - Duodenitis [Unknown]

NARRATIVE: CASE EVENT DATE: 20250509
